FAERS Safety Report 6664751-0 (Version None)
Quarter: 2010Q1

REPORT INFORMATION
  Report Type: 
  Country: None (occurrence: None)
  Receive Date: 20100330
  Receipt Date: 20100317
  Transmission Date: 20100710
  Serious: Yes (Disabling)
  Sender: FDA-Public Use
  Company Number: 1000012694

PATIENT
  Age: 54 Year
  Sex: Female

DRUGS (6)
  1. CITALOPRAM HYDROBROMIDE [Suspect]
     Dosage: 10 MG (10 MG, 1 IN 1 D), ORAL
     Route: 048
     Dates: start: 20100219, end: 20100302
  2. CIPRALEX (TABLETS) [Concomitant]
  3. RISPERIDONE [Concomitant]
  4. ATENOLOL [Concomitant]
  5. FELODIPINE (TABLETS) [Concomitant]
  6. LAMOTRIGINE [Concomitant]

REACTIONS (3)
  - DIARRHOEA [None]
  - DRUG DISPENSING ERROR [None]
  - WRONG DRUG ADMINISTERED [None]
